FAERS Safety Report 8593413-8 (Version None)
Quarter: 2012Q3

REPORT INFORMATION
  Report Type: 
  Country: None (occurrence: None)
  Receive Date: 20120814
  Receipt Date: 20120807
  Transmission Date: 20120928
  Serious: Yes (Other)
  Sender: FDA-Public Use
  Company Number: JP-VERTEX PHARMACEUTICALS INC.-AE-2012-011968

PATIENT
  Age: 51 Year
  Sex: Male

DRUGS (8)
  1. UBIRON [Concomitant]
     Route: 048
     Dates: end: 20120605
  2. TELAVIC (TELAPREVIR) [Suspect]
     Indication: HEPATITIS C
     Route: 048
     Dates: start: 20120502, end: 20120722
  3. REBETOL [Concomitant]
     Indication: HEPATITIS C
     Route: 048
     Dates: start: 20120502, end: 20120606
  4. JANUVIA [Concomitant]
     Route: 048
  5. REBETOL [Concomitant]
     Route: 048
     Dates: start: 20120607, end: 20120708
  6. PEGINTERFERON ALFA-2B [Concomitant]
     Indication: HEPATITIS C
     Route: 058
     Dates: start: 20120502
  7. SELBEX [Concomitant]
     Route: 048
  8. REBETOL [Concomitant]
     Route: 048
     Dates: start: 20120709

REACTIONS (1)
  - RENAL IMPAIRMENT [None]
